FAERS Safety Report 6159274-1 (Version None)
Quarter: 2009Q2

REPORT INFORMATION
  Report Type: 
  Country: None (occurrence: None)
  Receive Date: 20090417
  Receipt Date: 20090407
  Transmission Date: 20091009
  Serious: Yes (Disabling, Other)
  Sender: FDA-Public Use
  Company Number: GB-TEVA-191232ISR

PATIENT
  Age: 48 Year
  Sex: Male
  Weight: 84 kg

DRUGS (1)
  1. AMIODARONE [Suspect]
     Indication: HYPERTROPHIC CARDIOMYOPATHY
     Route: 048
     Dates: start: 20060201

REACTIONS (1)
  - ORCHITIS [None]
